FAERS Safety Report 8441806-1 (Version None)
Quarter: 2012Q2

REPORT INFORMATION
  Report Type: 
  Country: None (occurrence: None)
  Receive Date: 20120615
  Receipt Date: 20120607
  Transmission Date: 20120825
  Serious: Yes (Disabling)
  Sender: FDA-Public Use
  Company Number: US-BAYER-2011-121596

PATIENT
  Age: 43 Year
  Sex: Female
  Weight: 73 kg

DRUGS (5)
  1. FIORICET [Concomitant]
     Indication: HEADACHE
     Dosage: UNK UNK, PRN
     Route: 048
  2. HI-CAL [Concomitant]
     Dosage: 500 MG, UNK
     Route: 048
  3. YAZ [Suspect]
     Indication: MENSTRUAL DISORDER
  4. YAZ [Suspect]
     Indication: PREMENSTRUAL SYNDROME
     Dosage: UNK
     Dates: start: 20091201, end: 20100201
  5. VITAMIN A [Concomitant]
     Dosage: UNK UNK, QD
     Route: 048

REACTIONS (2)
  - INJURY [None]
  - DEEP VEIN THROMBOSIS [None]
